FAERS Safety Report 7874784-4 (Version None)
Quarter: 2011Q4

REPORT INFORMATION
  Report Type: 
  Country: None (occurrence: None)
  Receive Date: 20111031
  Receipt Date: 20111017
  Transmission Date: 20120403
  Serious: Yes (Other)
  Sender: FDA-Public Use
  Company Number: DE-ELI_LILLY_AND_COMPANY-DE201109005698

PATIENT
  Age: 63 Year
  Sex: Male

DRUGS (11)
  1. DIURETICS [Concomitant]
  2. BYETTA [Suspect]
     Dosage: 10 UG, BID
     Dates: start: 20110815, end: 20110819
  3. LANTUS [Concomitant]
     Dosage: UNK, UNKNOWN
  4. BYETTA [Suspect]
     Indication: TYPE 2 DIABETES MELLITUS
     Dosage: UNK, UNKNOWN
     Route: 058
     Dates: start: 20110809, end: 20110814
  5. ENALAPRIL [Concomitant]
     Dosage: 10 DF, EACH MORNING
  6. METFORMIN HCL [Concomitant]
     Dosage: UNK, BID
  7. HYDROCHLOROTHIAZIDE [Concomitant]
     Dosage: 25 DF, EACH MORNING
  8. LERCANIDIPINE [Concomitant]
     Dosage: 10 DF, EACH MORNING
  9. CARVEDILOL [Concomitant]
     Dosage: 6.25 DF, EACH MORNING
  10. SIMVASTATIN [Concomitant]
     Dosage: 20 DF, EACH EVENING
  11. ACE INHIBITORS [Concomitant]

REACTIONS (7)
  - PANCREATITIS [None]
  - BLOOD AMYLASE INCREASED [None]
  - MUSCLE SPASMS [None]
  - LIPASE INCREASED [None]
  - ABDOMINAL PAIN [None]
  - OFF LABEL USE [None]
  - NAUSEA [None]
